FAERS Safety Report 21604544 (Version 1)
Quarter: 2022Q4

REPORT INFORMATION
  Report Type: Spontaneous
  Country: US (occurrence: US)
  Receive Date: 20221116
  Receipt Date: 20221116
  Transmission Date: 20230113
  Serious: No
  Sender: FDA-Public Use
  Company Number: US-ELI_LILLY_AND_COMPANY-US202210014088

PATIENT
  Sex: Female
  Weight: 131.1 kg

DRUGS (12)
  1. MOUNJARO [Suspect]
     Active Substance: TIRZEPATIDE
     Indication: Weight decreased
     Dosage: UNK UNK, UNKNOWN
     Route: 065
     Dates: start: 202210
  2. TRULICITY [Suspect]
     Active Substance: DULAGLUTIDE
     Indication: Product used for unknown indication
     Dosage: UNK UNK, UNKNOWN
     Route: 065
  3. KORLYM [Suspect]
     Active Substance: MIFEPRISTONE
     Indication: Cushing^s syndrome
     Dosage: 600 MG, DAILY
     Route: 048
     Dates: start: 20190717, end: 201909
  4. KORLYM [Suspect]
     Active Substance: MIFEPRISTONE
     Dosage: 900 MG, DAILY
     Route: 048
     Dates: start: 201909
  5. METFORMIN [Concomitant]
     Active Substance: METFORMIN HYDROCHLORIDE
  6. ASPIRIN [Concomitant]
     Active Substance: ASPIRIN
  7. CARVEDILOL [Concomitant]
     Active Substance: CARVEDILOL
  8. CYCLOSET [Concomitant]
     Active Substance: BROMOCRIPTINE MESYLATE
  9. NORCO [Concomitant]
     Active Substance: ACETAMINOPHEN\HYDROCODONE BITARTRATE
  10. METOPROLOL SUCCINATE [Concomitant]
     Active Substance: METOPROLOL SUCCINATE
  11. PRAVASTATIN [Concomitant]
     Active Substance: PRAVASTATIN
  12. TRESIBA [Concomitant]
     Active Substance: INSULIN DEGLUDEC

REACTIONS (5)
  - Off label use [Unknown]
  - Fungal infection [Unknown]
  - Nausea [Unknown]
  - Decreased appetite [Unknown]
  - Blood glucose decreased [Unknown]
